FAERS Safety Report 7012504-6 (Version None)
Quarter: 2010Q3

REPORT INFORMATION
  Report Type: 
  Country: None (occurrence: None)
  Receive Date: 20100923
  Receipt Date: 20100923
  Transmission Date: 20110219
  Serious: Yes (Hospitalization)
  Sender: FDA-Public Use
  Company Number: None

PATIENT
  Age: 74 Year
  Sex: Female
  Weight: 54.8852 kg

DRUGS (1)
  1. RECLAST [Suspect]
     Indication: OSTEOARTHRITIS
     Dosage: I.V. SHOT
     Dates: start: 20090914

REACTIONS (1)
  - UNEVALUABLE EVENT [None]
